FAERS Safety Report 20395998 (Version 1)
Quarter: 2022Q1

REPORT INFORMATION
  Report Type: Spontaneous
  Country: US (occurrence: US)
  Receive Date: 20220130
  Receipt Date: 20220130
  Transmission Date: 20220423
  Serious: Yes (Other)
  Sender: FDA-Public Use
  Company Number: US-PURDUE-USA-2021-0274744

PATIENT
  Sex: Male

DRUGS (3)
  1. OXYCODONE HYDROCHLORIDE [Suspect]
     Active Substance: OXYCODONE HYDROCHLORIDE
     Indication: Pain
     Dosage: 30 MG WITH UNKNOWN FREQUENCY
     Route: 065
     Dates: start: 2008
  2. TRAMADOL [Suspect]
     Active Substance: TRAMADOL
     Indication: Pain
     Dosage: UNKNOWN
     Route: 048
  3. ACETAMINOPHEN\OXYCODONE HYDROCHLORIDE\OXYCODONE TEREPHTHALATE [Suspect]
     Active Substance: ACETAMINOPHEN\OXYCODONE HYDROCHLORIDE\OXYCODONE TEREPHTHALATE
     Indication: Pain
     Dosage: UNKNOWN
     Route: 065

REACTIONS (13)
  - Mental impairment [Unknown]
  - Drug dependence [Unknown]
  - Pain [Unknown]
  - Libido decreased [Unknown]
  - Confusional state [Unknown]
  - Decreased appetite [Unknown]
  - Disturbance in sexual arousal [Unknown]
  - Sleep disorder [Unknown]
  - Muscular dystrophy [Unknown]
  - General physical health deterioration [Unknown]
  - Social avoidant behaviour [Unknown]
  - Illness [Unknown]
  - Learning disability [Unknown]
